FAERS Safety Report 9388801 (Version 2)
Quarter: 2013Q4

REPORT INFORMATION
  Report Type: Spontaneous
  Country: GB (occurrence: GB)
  Receive Date: 20130708
  Receipt Date: 20131127
  Transmission Date: 20140711
  Serious: Yes (Death, Other)
  Sender: FDA-Public Use
  Company Number: PHHY2013GB070553

PATIENT
  Age: 42 Year
  Sex: Female

DRUGS (7)
  1. DIAZEPAM [Suspect]
     Dosage: 20 MG, UNK
     Route: 048
  2. IBUPROFEN [Suspect]
     Dosage: UNK
  3. COCAINE [Suspect]
     Dosage: UNK
  4. SUBUTEX [Suspect]
     Dosage: 4 MG, UNK
     Route: 048
  5. CANNABIS SATIVA [Suspect]
     Dosage: UNK
  6. OXAZEPAM [Suspect]
     Dosage: UNK (TAKEN INTERMITTENTLY)
  7. DESMETHYLDIAZEPAM [Suspect]
     Dosage: UNK

REACTIONS (3)
  - Toxicity to various agents [Fatal]
  - Overdose [Fatal]
  - Maternal exposure during pregnancy [Recovered/Resolved]
